FAERS Safety Report 7636524-3 (Version None)
Quarter: 2011Q3

REPORT INFORMATION
  Report Type: 
  Country: None (occurrence: None)
  Receive Date: 20110726
  Receipt Date: 20110715
  Transmission Date: 20111222
  Serious: Yes (Congenital Anomaly)
  Sender: FDA-Public Use
  Company Number: US-MERCK-1107USA02181B1

PATIENT
  Sex: Male

DRUGS (1)
  1. PROSCAR [Suspect]
     Route: 064

REACTIONS (5)
  - MATERNAL EXPOSURE DURING PREGNANCY [None]
  - URETHRAL DISORDER [None]
  - ERECTILE DYSFUNCTION [None]
  - THYROID DISORDER [None]
  - GENITAL DISORDER MALE [None]
